FAERS Safety Report 5780960-7 (Version None)
Quarter: 2008Q2

REPORT INFORMATION
  Report Type: 
  Country: None (occurrence: None)
  Receive Date: 20080618
  Receipt Date: 20080605
  Transmission Date: 20081010
  Serious: Yes (Hospitalization)
  Sender: FDA-Public Use
  Company Number: 2008AL004963

PATIENT
  Age: 49 Year
  Sex: Female
  Weight: 99.7913 kg

DRUGS (11)
  1. DIGOXIN [Suspect]
     Indication: ARRHYTHMIA
     Dosage: 0.125MG DAILY PO
     Route: 048
     Dates: start: 20041201, end: 20080605
  2. LISINOPRIL [Concomitant]
  3. LLIPITOR [Concomitant]
  4. TRICOR [Concomitant]
  5. GLUCOPHAGE [Concomitant]
  6. GLUCOTROL XL [Concomitant]
  7. SOTALOL HCL [Concomitant]
  8. ASPIRIN [Concomitant]
  9. COUMADIN [Concomitant]
  10. MUCINEX [Concomitant]
  11. TORSEMIDE [Concomitant]

REACTIONS (8)
  - BRADYCARDIA [None]
  - CHEST PAIN [None]
  - DIZZINESS [None]
  - FATIGUE [None]
  - HYPOTENSION [None]
  - MOVEMENT DISORDER [None]
  - NAUSEA [None]
  - PAIN [None]
